FAERS Safety Report 8766393 (Version 2)
Quarter: 2013Q2

REPORT INFORMATION
  Report Type: Report from Study
  Country: JP (occurrence: JP)
  Receive Date: 20120904
  Receipt Date: 20130416
  Transmission Date: 20140414
  Serious: Yes (Hospitalization)
  Sender: FDA-Public Use
  Company Number: JP-009507513-1208JPN011618

PATIENT
  Age: 48 Year
  Sex: Male
  Weight: 73 kg

DRUGS (13)
  1. PEGINTRON [Suspect]
     Indication: CHRONIC HEPATITIS C
     Dosage: 1.5 MICROGRAM PER KILOGRAM, QW
     Route: 058
     Dates: start: 20120614
  2. REBETOL [Suspect]
     Indication: CHRONIC HEPATITIS C
     Dosage: 800 MG, QD
     Route: 048
     Dates: start: 20120614, end: 20120711
  3. REBETOL [Suspect]
     Dosage: 600 MG, QD
     Route: 048
     Dates: start: 20120712
  4. TELAVIC [Suspect]
     Indication: CHRONIC HEPATITIS C
     Dosage: 2250 MG, QD
     Route: 048
     Dates: start: 20120614
  5. PREDONINE [Suspect]
     Indication: ADVERSE EVENT
     Dosage: 15 MG, QD, FORMULATION: POR
     Route: 048
     Dates: start: 20120625, end: 20120704
  6. PREDONINE [Suspect]
     Dosage: 10 MG, QD, FORMULATION: POR
     Route: 048
     Dates: start: 20120705, end: 20120711
  7. PREDONINE [Suspect]
     Dosage: 15 MG, QD, FORMULATION: POR
     Route: 048
     Dates: start: 20120712, end: 20120718
  8. PREDONINE [Suspect]
     Dosage: 10 MG, QD, FORMULATION: POR
     Route: 048
     Dates: start: 20120719, end: 20120725
  9. PREDONINE [Suspect]
     Dosage: 7.5 MG, QD, FORMULATION: POR
     Route: 048
     Dates: start: 20120726, end: 20120801
  10. PREDONINE [Suspect]
     Dosage: 5 MG, QD, FORMULATION: POR
     Route: 048
     Dates: start: 20120802
  11. LOXOPROFEN [Suspect]
     Indication: PROPHYLAXIS
     Dosage: 1 TABLET A DAY, PRN, DAILY DOSE UNKNOWN
     Route: 048
     Dates: start: 20120614
  12. CIBENOL [Concomitant]
     Indication: ARRHYTHMIA
     Dosage: 100 MG, QD, FORMULATION: POR
     Route: 048
  13. DIOVAN [Concomitant]
     Indication: HYPERTENSION
     Dosage: 80 MG, QD, FORMULATION: POR
     Route: 048

REACTIONS (1)
  - Erythema multiforme [Recovering/Resolving]
